FAERS Safety Report 6985571-3 (Version None)
Quarter: 2010Q3

REPORT INFORMATION
  Report Type: 
  Country: None (occurrence: None)
  Receive Date: 20100915
  Receipt Date: 20100901
  Transmission Date: 20110219
  Serious: Yes (Other)
  Sender: FDA-Public Use
  Company Number: GB-MERCK-1009GBR00012

PATIENT
  Age: 61 Year
  Sex: Female

DRUGS (5)
  1. SINEMET [Suspect]
     Route: 048
  2. ROPINIROLE HYDROCHLORIDE [Suspect]
     Indication: PARKINSON'S DISEASE
     Route: 065
  3. APOMORPHINE HYDROCHLORIDE [Concomitant]
     Route: 065
  4. ROPINIROLE HYDROCHLORIDE [Concomitant]
     Route: 065
  5. CARBIDOPA AND LEVODOPA [Concomitant]
     Route: 065

REACTIONS (3)
  - PAIN [None]
  - PARKINSON'S DISEASE [None]
  - WITHDRAWAL SYNDROME [None]
